FAERS Safety Report 7940063-X (Version None)
Quarter: 2011Q4

REPORT INFORMATION
  Report Type: 
  Country: None (occurrence: None)
  Receive Date: 20111125
  Receipt Date: 20111115
  Transmission Date: 20120403
  Serious: Yes (Congenital Anomaly)
  Sender: FDA-Public Use
  Company Number: PHHY2011DE102020

PATIENT
  Sex: Male

DRUGS (10)
  1. ALBUTEROL SULFATE AUTOHALER [Concomitant]
     Indication: HYPERSENSITIVITY
     Dosage: UNK
     Route: 064
     Dates: start: 20091114, end: 20100129
  2. METHYLDOPA [Suspect]
     Indication: HYPERTENSION
     Dosage: 750 MG, QD
     Route: 064
     Dates: start: 20091016, end: 20100712
  3. INFLUENZA VACCINE [Concomitant]
     Indication: PROPHYLAXIS
     Route: 064
  4. METOPROLOL TARTRATE [Suspect]
     Indication: HYPERTENSION
     Dosage: 100 MG, QD
     Route: 064
     Dates: start: 20091016, end: 20100712
  5. NEPRESOL [Concomitant]
     Dosage: 100 MG, PER DAY
     Route: 064
  6. CEFUROXIME [Concomitant]
     Indication: PNEUMONIA
     Dosage: 1000 MG, PER DAY
     Route: 064
     Dates: start: 20091114, end: 20091123
  7. FOLIO [Concomitant]
     Dosage: UNK
     Route: 064
     Dates: start: 20091016, end: 20100628
  8. FUSIDIC ACID [Concomitant]
     Indication: LOCALISED INFECTION
     Dosage: UNK
     Route: 064
     Dates: start: 20100113, end: 20100116
  9. PREDNISOLONE [Concomitant]
     Dosage: 5 MG, DAY
     Route: 064
     Dates: start: 20091016, end: 20100114
  10. ACETYLSALICYLIC ACID SRT [Concomitant]
     Dosage: 100 MG, PER DAY
     Route: 064

REACTIONS (2)
  - TALIPES [None]
  - FOETAL EXPOSURE DURING PREGNANCY [None]
